FAERS Safety Report 7718083-X (Version None)
Quarter: 2011Q3

REPORT INFORMATION
  Report Type: 
  Country: None (occurrence: None)
  Receive Date: 20110830
  Receipt Date: 20110823
  Transmission Date: 20111222
  Serious: Yes (Hospitalization, Other)
  Sender: FDA-Public Use
  Company Number: US-PFIZER INC-2008014080

PATIENT
  Sex: Female

DRUGS (10)
  1. LYRICA [Suspect]
     Indication: SPINAL CORD INJURY
     Dosage: 150 MG, 2X/DAY
  2. METOPROLOL TARTRATE [Concomitant]
  3. ZOLOFT [Concomitant]
  4. TRAZODONE HYDROCHLORIDE [Suspect]
     Indication: SLEEP DISORDER
     Dosage: UNK
  5. FOSAMAX [Concomitant]
  6. LYRICA [Suspect]
     Indication: NEUROPATHY PERIPHERAL
  7. GABAPENTIN [Suspect]
     Dosage: 1800 MG, 3X/DAY
  8. LYRICA [Suspect]
     Indication: NEURALGIA
  9. LAMICTAL [Suspect]
     Dosage: UNK
  10. LEVOTHYROXINE SODIUM [Concomitant]

REACTIONS (16)
  - DEPRESSION [None]
  - DEHYDRATION [None]
  - HYPERHIDROSIS [None]
  - WITHDRAWAL SYNDROME [None]
  - SUICIDAL IDEATION [None]
  - DEPENDENCE [None]
  - ANEURYSM [None]
  - FOOT FRACTURE [None]
  - GAIT DISTURBANCE [None]
  - LABILE BLOOD PRESSURE [None]
  - HEART RATE DECREASED [None]
  - ARRHYTHMIA [None]
  - MALAISE [None]
  - CONVULSION [None]
  - BURSITIS [None]
  - MUSCLE TWITCHING [None]
